FAERS Safety Report 24528982 (Version 2)
Quarter: 2024Q4

REPORT INFORMATION
  Report Type: Report from Study
  Country: US (occurrence: US)
  Receive Date: 20241021
  Receipt Date: 20241026
  Transmission Date: 20250115
  Serious: Yes (Hospitalization, Other)
  Sender: ABBVIE
  Company Number: US-ABBVIE-5970436

PATIENT
  Sex: Male

DRUGS (2)
  1. HUMIRA [Suspect]
     Active Substance: ADALIMUMAB
     Indication: Uveitis
     Dosage: FORM STRENGTH: 40 MG
     Route: 058
     Dates: start: 202304, end: 2024
  2. HUMIRA [Suspect]
     Active Substance: ADALIMUMAB
     Indication: Ankylosing spondylitis
     Dosage: RE-STARTED?FORM STRENGTH: 40 MG
     Route: 058
     Dates: start: 202410

REACTIONS (2)
  - Diverticulitis [Recovered/Resolved]
  - Umbilical hernia [Unknown]

NARRATIVE: CASE EVENT DATE: 20240101
